FAERS Safety Report 16217523 (Version 1)
Quarter: 2019Q2

REPORT INFORMATION
  Report Type: Spontaneous
  Country: FR (occurrence: FR)
  Receive Date: 20190419
  Receipt Date: 20190419
  Transmission Date: 20190711
  Serious: Yes (Hospitalization, Other)
  Sender: FDA-Public Use
  Company Number: FR-AMGEN-FRASP2019060378

PATIENT
  Age: 32 Year
  Sex: Female
  Weight: 80 kg

DRUGS (2)
  1. NICARDIPINE HCL [Suspect]
     Active Substance: NICARDIPINE HYDROCHLORIDE
     Indication: PROTEINURIA
     Dosage: UNK
     Route: 048
  2. ENBREL [Suspect]
     Active Substance: ETANERCEPT
     Indication: ANKYLOSING SPONDYLITIS
     Dosage: UNK
     Route: 058

REACTIONS (1)
  - HELLP syndrome [Recovered/Resolved]

NARRATIVE: CASE EVENT DATE: 20181011
